FAERS Safety Report 5106225-4 (Version None)
Quarter: 2006Q3

REPORT INFORMATION
  Report Type: 
  Country: None (occurrence: None)
  Receive Date: 20060912
  Receipt Date: 20060901
  Transmission Date: 20061208
  Serious: Yes (Hospitalization)
  Sender: FDA-Public Use
  Company Number: 2006106642

PATIENT
  Sex: Female

DRUGS (3)
  1. AZULFIDINE EN-TABS [Suspect]
     Indication: RHEUMATOID ARTHRITIS
     Dosage: 1 GRAM (500 MG, 2 IN 1 D), ORAL
     Route: 048
  2. MUCOSTA (REBAMIPIDE) [Concomitant]
  3. ETODOLAC [Concomitant]

REACTIONS (2)
  - AGRANULOCYTOSIS [None]
  - PNEUMONIA [None]
